FAERS Safety Report 14092798 (Version 2)
Quarter: 2017Q4

REPORT INFORMATION
  Report Type: Spontaneous
  Country: LT (occurrence: LT)
  Receive Date: 20171016
  Receipt Date: 20171129
  Transmission Date: 20180321
  Serious: Yes (Hospitalization, Other)
  Sender: FDA-Public Use
  Company Number: LT-GLAXOSMITHKLINE-LT2017GSK157398

PATIENT
  Age: 35 Year
  Sex: Male

DRUGS (2)
  1. COBICISTAT + DARUNAVIR [Suspect]
     Active Substance: COBICISTAT\DARUNAVIR ETHANOLATE
     Indication: HIV INFECTION
     Dosage: UNK UNK, 1D
     Dates: start: 20161221, end: 201708
  2. KIVEXA [Suspect]
     Active Substance: ABACAVIR SULFATE\LAMIVUDINE
     Indication: HIV INFECTION
     Dosage: UNK
     Route: 048
     Dates: start: 20161221

REACTIONS (15)
  - Skin lesion [Not Recovered/Not Resolved]
  - Erythema [Unknown]
  - Hidradenitis [Unknown]
  - Blister [Unknown]
  - Dyspnoea exertional [Unknown]
  - Urinary tract infection [Unknown]
  - Anaemia [Unknown]
  - Pain in extremity [Unknown]
  - Dyspnoea [Unknown]
  - Peripheral swelling [Unknown]
  - Pneumonia [Unknown]
  - Erysipelas [Unknown]
  - Pyrexia [Unknown]
  - Chromaturia [Recovered/Resolved]
  - Skin ulcer [Unknown]

NARRATIVE: CASE EVENT DATE: 201706
